FAERS Safety Report 4470839-5 (Version None)
Quarter: 2004Q4

REPORT INFORMATION
  Report Type: 
  Country: None (occurrence: None)
  Receive Date: 20041011
  Receipt Date: 20040928
  Transmission Date: 20050328
  Serious: Yes (Other)
  Sender: FDA-Public Use
  Company Number: US-BRISTOL-MYERS SQUIBB COMPANY-12717070

PATIENT

DRUGS (2)
  1. ABILIFY [Suspect]
     Route: 048
  2. STRATTERA [Concomitant]

REACTIONS (1)
  - OESOPHAGEAL DISORDER [None]
